FAERS Safety Report 7212493-5 (Version None)
Quarter: 2010Q4

REPORT INFORMATION
  Report Type: 
  Country: None (occurrence: None)
  Receive Date: 20101229
  Receipt Date: 20101214
  Transmission Date: 20110411
  Serious: Yes (Death, Other)
  Sender: FDA-Public Use
  Company Number: 012458

PATIENT
  Age: 54 Year

DRUGS (1)
  1. BUSULFEX [Suspect]
     Indication: STEM CELL TRANSPLANT

REACTIONS (1)
  - THROMBOTIC MICROANGIOPATHY [None]
